FAERS Safety Report 4536388-0 (Version None)
Quarter: 2004Q4

REPORT INFORMATION
  Report Type: 
  Country: None (occurrence: None)
  Receive Date: 20041220
  Receipt Date: 20041206
  Transmission Date: 20050328
  Serious: Yes (Hospitalization)
  Sender: FDA-Public Use
  Company Number: 2004SP000187

PATIENT
  Age: 83 Year
  Sex: Male
  Weight: 74.8435 kg

DRUGS (14)
  1. XOPENEX [Suspect]
     Indication: CHRONIC OBSTRUCTIVE AIRWAYS DISEASE
     Dosage: 1.25 MG; Q6H; INHALATION
     Route: 055
     Dates: start: 20040718, end: 20040721
  2. ASPIRIN [Concomitant]
  3. GLYBURIDE [Concomitant]
  4. THEOPHYLLINE [Concomitant]
  5. SYNTHROID [Concomitant]
  6. MULTI-VITAMIN [Concomitant]
  7. COZAAR [Concomitant]
  8. HYTRIN [Concomitant]
  9. PROZAC [Concomitant]
  10. PREDNISONE [Concomitant]
  11. ZITHROMAX [Concomitant]
  12. ALBUTEROL [Concomitant]
  13. ATROVENT [Concomitant]
  14. ADVAIR DISKUS 100/50 [Concomitant]

REACTIONS (1)
  - CHRONIC OBSTRUCTIVE AIRWAYS DISEASE EXACERBATED [None]
